FAERS Safety Report 6172192-8 (Version None)
Quarter: 2009Q2

REPORT INFORMATION
  Report Type: 
  Country: None (occurrence: None)
  Receive Date: 20090429
  Receipt Date: 20081203
  Transmission Date: 20091009
  Serious: No
  Sender: FDA-Public Use
  Company Number: A0758972A

PATIENT
  Age: 40 Year
  Sex: Male

DRUGS (8)
  1. ZOFRAN [Suspect]
     Indication: NAUSEA
     Dosage: 8MG TWICE PER DAY
     Route: 048
     Dates: start: 20080301
  2. PHENERGAN [Suspect]
     Indication: NAUSEA
     Dosage: 25MG VARIABLE DOSE
     Route: 048
  3. PANCREASE MT16 [Concomitant]
  4. LIBRAX [Concomitant]
  5. REGLAN [Concomitant]
  6. REQUIP [Concomitant]
  7. LORA TAB [Concomitant]
  8. CARAFATE [Concomitant]

REACTIONS (3)
  - DEHYDRATION [None]
  - DIARRHOEA [None]
  - DRUG INEFFECTIVE [None]
